FAERS Safety Report 14172534 (Version 1)
Quarter: 2017Q4

REPORT INFORMATION
  Report Type: Spontaneous
  Country: US (occurrence: US)
  Receive Date: 20171108
  Receipt Date: 20171108
  Transmission Date: 20180321
  Serious: Yes (Life-Threatening)
  Sender: FDA-Public Use
  Company Number: None

PATIENT
  Age: 32 Year
  Sex: Female
  Weight: 63 kg

DRUGS (1)
  1. JUNEL 1.5/30 [Suspect]
     Active Substance: ETHINYL ESTRADIOL\NORETHINDRONE ACETATE
     Indication: MIGRAINE PROPHYLAXIS
     Route: 048
     Dates: start: 20161001, end: 20170714

REACTIONS (2)
  - Invasive ductal breast carcinoma [None]
  - Wrong technique in product usage process [None]

NARRATIVE: CASE EVENT DATE: 20170719
